FAERS Safety Report 4487885-8 (Version None)
Quarter: 2004Q4

REPORT INFORMATION
  Report Type: 
  Country: None (occurrence: None)
  Receive Date: 20041025
  Receipt Date: 20041015
  Transmission Date: 20050328
  Serious: Yes (Death, Hospitalization)
  Sender: FDA-Public Use
  Company Number: STA-AE-04-MTX-453

PATIENT
  Age: 76 Year
  Sex: Female

DRUGS (9)
  1. RHEUMATREX [Suspect]
     Indication: RHEUMATOID ARTHRITIS
     Dosage: 4 MG 1X PER 1 WK, ORAL
     Route: 048
     Dates: start: 20040526, end: 20040720
  2. RHEUMATREX [Suspect]
     Indication: RHEUMATOID ARTHRITIS
     Dosage: 6 MG 1X PER 1 WK, ORAL
     Route: 048
     Dates: start: 20040720, end: 20040914
  3. SHIOSOL (SODIUM AUROTHIOMALATE) [Suspect]
     Dosage: 10 MG 1X PER 1 WK, IM
     Route: 030
     Dates: end: 20040914
  4. PREDNISOLONE [Concomitant]
  5. SHIOSOL (SODIUM AUROTHIOMALATE) [Concomitant]
  6. ALENDRONATE SODIUM [Concomitant]
  7. ZANTAC [Concomitant]
  8. MOBIC [Concomitant]
  9. TANKARU (CALCIUM CARBONATE) [Concomitant]

REACTIONS (2)
  - INTERSTITIAL LUNG DISEASE [None]
  - RESPIRATORY FAILURE [None]
